FAERS Safety Report 9199774 (Version 1)
Quarter: 2013Q1

REPORT INFORMATION
  Report Type: Spontaneous
  Country: US (occurrence: None)
  Receive Date: 20130328
  Receipt Date: 20130328
  Transmission Date: 20140127
  Serious: Yes (Life-Threatening, Hospitalization, Disabling)
  Sender: FDA-Public Use
  Company Number: None

PATIENT
  Age: 61 Year
  Sex: Male
  Weight: 67.13 kg

DRUGS (1)
  1. LIPITOR [Suspect]

REACTIONS (28)
  - Neck pain [None]
  - Musculoskeletal pain [None]
  - Myalgia [None]
  - Fatigue [None]
  - Depression [None]
  - Influenza like illness [None]
  - Memory impairment [None]
  - Memory impairment [None]
  - Confusional state [None]
  - Sexual dysfunction [None]
  - Balance disorder [None]
  - Vision blurred [None]
  - Aphasia [None]
  - Tongue coated [None]
  - Micturition urgency [None]
  - Dysphagia [None]
  - Feeling hot [None]
  - Feeling hot [None]
  - Blood glucose increased [None]
  - Insomnia [None]
  - Disturbance in attention [None]
  - Paraesthesia [None]
  - Headache [None]
  - Anger [None]
  - Feeling abnormal [None]
  - Renal cancer [None]
  - Adrenal gland cancer [None]
  - Dementia [None]
